FAERS Safety Report 18461813 (Version 2)
Quarter: 2020Q4

REPORT INFORMATION
  Report Type: Spontaneous
  Country: CN (occurrence: CN)
  Receive Date: 20201104
  Receipt Date: 20201113
  Transmission Date: 20210114
  Serious: Yes (Hospitalization, Other)
  Sender: FDA-Public Use
  Company Number: CN-GLAXOSMITHKLINE-CN2020APC215619

PATIENT
  Age: 91 Year
  Sex: Female
  Weight: 44 kg

DRUGS (2)
  1. VOLTAREN [Suspect]
     Active Substance: DICLOFENAC SODIUM
     Indication: PAIN
     Dosage: 1 DF, QD, TABLET
     Route: 048
     Dates: start: 20201014, end: 20201018
  2. IBUPROFEN. [Suspect]
     Active Substance: IBUPROFEN
     Indication: PAIN
     Dosage: 1 DF, QD, CAPSULE
     Route: 048
     Dates: start: 20201014, end: 20201018

REACTIONS (4)
  - Vomiting [Recovering/Resolving]
  - Faeces discoloured [Recovering/Resolving]
  - Upper gastrointestinal haemorrhage [Recovering/Resolving]
  - Condition aggravated [Unknown]

NARRATIVE: CASE EVENT DATE: 20201018
